FAERS Safety Report 7385779-1 (Version None)
Quarter: 2011Q1

REPORT INFORMATION
  Report Type: 
  Country: None (occurrence: None)
  Receive Date: 20110301
  Receipt Date: 20100629
  Transmission Date: 20110831
  Serious: Yes (Other)
  Sender: FDA-Public Use
  Company Number: 2211100-US-JNJFOC-20100302886

PATIENT
  Age: 70 Year
  Sex: Female
  Weight: 77.1115 kg

DRUGS (2)
  1. NSAIDS (NSAID'S) [Suspect]
     Indication: PAIN
  2. MOTRIN [Suspect]
     Indication: ARTHRALGIA
     Dosage: 2 DOSE(S), 1 IN 1 AS NECESSARY

REACTIONS (1)
  - GASTRIC ULCER [None]
